FAERS Safety Report 8266165-9 (Version None)
Quarter: 2012Q1

REPORT INFORMATION
  Report Type: 
  Country: None (occurrence: None)
  Receive Date: 20120327
  Receipt Date: 20090922
  Transmission Date: 20120608
  Serious: Yes (Other)
  Sender: FDA-Public Use
  Company Number: PHEH2009US11455

PATIENT
  Age: 83 Year
  Sex: Female

DRUGS (7)
  1. CALCIUM CARBONATE [Concomitant]
  2. FOLIC ACID [Concomitant]
  3. ASPIRIN [Concomitant]
  4. GLEEVEC [Suspect]
     Indication: ACUTE MYELOID LEUKAEMIA
     Dosage: 300 MG, QD, ORAL
     Route: 048
     Dates: start: 20030429
  5. VITAMIN D [Concomitant]
  6. SYNTHROID [Concomitant]
  7. TRICOR [Concomitant]

REACTIONS (4)
  - DIARRHOEA [None]
  - EYE SWELLING [None]
  - OEDEMA MOUTH [None]
  - MUSCLE SPASMS [None]
